FAERS Safety Report 8608365-1 (Version None)
Quarter: 2012Q3

REPORT INFORMATION
  Report Type: 
  Country: None (occurrence: None)
  Receive Date: 20120808
  Receipt Date: 20120725
  Transmission Date: 20120928
  Serious: Yes (Other)
  Sender: FDA-Public Use
  Company Number: DSA_58818_2012

PATIENT
  Sex: Female

DRUGS (15)
  1. BUPROPION HYDROCHLORIDE [Suspect]
     Indication: DEPRESSION
     Dosage: (150 MG, DAILY), (DF)
     Dates: start: 20120425, end: 20120426
  2. BUPROPION HYDROCHLORIDE [Suspect]
     Indication: ANXIETY
     Dosage: (150 MG, DAILY), (DF)
     Dates: start: 20120425, end: 20120426
  3. BUPROPION HYDROCHLORIDE [Suspect]
     Indication: DEPRESSION
     Dosage: (150 MG, DAILY), (DF)
     Dates: start: 20120101
  4. BUPROPION HYDROCHLORIDE [Suspect]
     Indication: ANXIETY
     Dosage: (150 MG, DAILY), (DF)
     Dates: start: 20120101
  5. ZOLPIDEM [Concomitant]
  6. BUDESONIDE [Concomitant]
  7. PROPAVAN [Concomitant]
  8. CYKLOKAPRON [Concomitant]
  9. CLEMASTINE FUMARATE [Concomitant]
  10. SCHERIPROCT [Concomitant]
  11. TRIMEPRAZINE TAB [Concomitant]
  12. OMEPRAZOLE [Concomitant]
  13. VALPROATE SODIUM [Concomitant]
  14. VENTOLINE /00139502/ [Concomitant]
  15. XYLOPROCT [Concomitant]

REACTIONS (5)
  - FALL [None]
  - BLOOD PRESSURE DECREASED [None]
  - SYNCOPE [None]
  - DYSSTASIA [None]
  - DIZZINESS [None]
